FAERS Safety Report 20347430 (Version 1)
Quarter: 2022Q1

REPORT INFORMATION
  Report Type: Spontaneous
  Country: US (occurrence: None)
  Receive Date: 20220117
  Receipt Date: 20220117
  Transmission Date: 20220424
  Serious: Yes (Death, Hospitalization)
  Sender: FDA-Public Use
  Company Number: None

PATIENT
  Age: 66 Year
  Sex: Male

DRUGS (16)
  1. BAMLANIVIMAB\ETESEVIMAB [Suspect]
     Active Substance: BAMLANIVIMAB\ETESEVIMAB
     Indication: COVID-19
     Dosage: FREQUENCY : ONCE;?
     Route: 042
     Dates: start: 20220108, end: 20220108
  2. amLODIPine (NORVASC) 10 mg, oral, Daily [Concomitant]
  3. aspirin 81 mg, oral, Daily [Concomitant]
  4. atorvastatin (LIPITOR) 40 mg, oral, Daily [Concomitant]
  5. buPROPion (WELLBUTRIN) 75 mg, oral, Daily [Concomitant]
  6. busPIRone (BUSPAR) 20 mg, oral, 3 times daily [Concomitant]
  7. clopidogreL (PLAVIX) 75 mg, oral, Daily [Concomitant]
  8. diclofenac sodium (VOLTAREN) 1 % topical gel, Apply to left hand [Concomitant]
  9. furosemide (LASIX)	20 mg, oral, 2 times daily [Concomitant]
  10. gabapentin (NEURONTIN) 600 mg, oral, 4 times daily [Concomitant]
  11. hydrOXYzine (VISTARIL) 25 mg, oral, 3 times daily PRN [Concomitant]
  12. lisinopriL (ZESTRIL) 40 mg tablet	Take 1 tablet by mouth once daily [Concomitant]
  13. metoprolol tartrate (LOPRESSOR) 50 mg table, Take 1 tablet by mouth tw [Concomitant]
  14. tamsulosin (FLOMAX), 0.4 mg, oral, Nightly [Concomitant]
  15. traZOdone (DESYREL), 200 mg, oral, Nightly [Concomitant]
  16. venlafaxine (EFFEXOR-XR), 150 mg, oral, Daily [Concomitant]

REACTIONS (6)
  - Oxygen saturation decreased [None]
  - Respiratory distress [None]
  - Unresponsive to stimuli [None]
  - Pulse absent [None]
  - Death [None]
  - Breath sounds absent [None]

NARRATIVE: CASE EVENT DATE: 20220108
